FAERS Safety Report 9132207 (Version 1)
Quarter: 2013Q1

REPORT INFORMATION
  Report Type: Report from Study
  Country: US (occurrence: US)
  Receive Date: 20130301
  Receipt Date: 20130301
  Transmission Date: 20140127
  Serious: No
  Sender: FDA-Public Use
  Company Number: US-MYLANLABS-2013S1000157

PATIENT
  Age: 26 Year
  Sex: Female
  Weight: 60 kg

DRUGS (4)
  1. AMNESTEEM CAPSULES [Suspect]
     Indication: ACNE
     Route: 048
     Dates: start: 20120921
  2. AMNESTEEM CAPSULES [Suspect]
     Indication: ACNE
     Route: 048
     Dates: start: 20120921, end: 20121218
  3. MIRENA [Concomitant]
  4. CITALOPRAM [Concomitant]
     Indication: ANXIETY

REACTIONS (2)
  - Mood altered [Recovered/Resolved]
  - Anger [Recovered/Resolved]
